FAERS Safety Report 7339693-8 (Version None)
Quarter: 2011Q1

REPORT INFORMATION
  Report Type: 
  Country: None (occurrence: None)
  Receive Date: 20110303
  Receipt Date: 20110303
  Transmission Date: 20110831
  Serious: Yes (Life-Threatening, Other)
  Sender: FDA-Public Use
  Company Number: None

PATIENT
  Age: 65 Year
  Sex: Female
  Weight: 117.9352 kg

DRUGS (1)
  1. AGGRENOX [Suspect]
     Dosage: 200MG - 25MG 2 TIMES DAY ORAL
     Route: 048
     Dates: start: 20110215, end: 20110221

REACTIONS (3)
  - BLOOD URINE PRESENT [None]
  - BLOOD PRESSURE DECREASED [None]
  - OLIGURIA [None]
